FAERS Safety Report 23818990 (Version 2)
Quarter: 2024Q2

REPORT INFORMATION
  Report Type: Spontaneous
  Country: US (occurrence: US)
  Receive Date: 20240506
  Receipt Date: 20240606
  Transmission Date: 20240715
  Serious: No
  Sender: FDA-Public Use
  Company Number: US-SA-SAC20240426000680

PATIENT
  Age: 5 Year
  Sex: Male

DRUGS (6)
  1. ALPROLIX [Suspect]
     Active Substance: EFTRENONACOG ALFA
     Indication: Factor IX deficiency
     Dosage: 2550 U (2295-2805) (550 U + 2000 U) SLOW IV PUSH EVERY WEEK (QW)
     Route: 042
     Dates: start: 202403
  2. ALPROLIX [Suspect]
     Active Substance: EFTRENONACOG ALFA
     Indication: Factor IX deficiency
     Dosage: 2550 U (2295-2805) (550 U + 2000 U) SLOW IV PUSH EVERY WEEK (QW)
     Route: 042
     Dates: start: 202403
  3. ALPROLIX [Suspect]
     Active Substance: EFTRENONACOG ALFA
     Dosage: 2550 U (2295-2805) (550 U + 2000 U) SLOW IV PUSH AS NEEDE (PRN)
     Route: 042
     Dates: start: 202403
  4. ALPROLIX [Suspect]
     Active Substance: EFTRENONACOG ALFA
     Dosage: 2550 U (2295-2805) (550 U + 2000 U) SLOW IV PUSH AS NEEDE (PRN)
     Route: 042
     Dates: start: 202403
  5. ALPROLIX [Suspect]
     Active Substance: EFTRENONACOG ALFA
     Dosage: 2468 U
     Route: 042
     Dates: start: 20240517, end: 20240517
  6. ALPROLIX [Suspect]
     Active Substance: EFTRENONACOG ALFA
     Dosage: 2468 U
     Route: 042
     Dates: start: 20240517, end: 20240517

REACTIONS (5)
  - Haemorrhage [Unknown]
  - Foot fracture [Unknown]
  - Abdominal pain [Unknown]
  - Head injury [Unknown]
  - Traumatic haemorrhage [Unknown]

NARRATIVE: CASE EVENT DATE: 20240409
